FAERS Safety Report 5081036-7 (Version None)
Quarter: 2006Q3

REPORT INFORMATION
  Report Type: 
  Country: None (occurrence: None)
  Receive Date: 20060810
  Receipt Date: 20060728
  Transmission Date: 20061208
  Serious: Yes (Hospitalization)
  Sender: FDA-Public Use
  Company Number: 2006092756

PATIENT
  Age: 72 Year
  Sex: Female
  Weight: 78 kg

DRUGS (1)
  1. SUTENT [Suspect]
     Indication: DRUG USE FOR UNKNOWN INDICATION
     Dosage: 50 MG (50 MG, 1 IN 1D), ORAL
     Route: 048
     Dates: start: 20060613, end: 20060626

REACTIONS (4)
  - ABDOMINAL PAIN [None]
  - AMNESIA [None]
  - ASTHENIA [None]
  - DEMENTIA ALZHEIMER'S TYPE [None]
